FAERS Safety Report 14448920 (Version 1)
Quarter: 2018Q1

REPORT INFORMATION
  Report Type: Spontaneous
  Country: FR (occurrence: FR)
  Receive Date: 20180126
  Receipt Date: 20180126
  Transmission Date: 20180509
  Serious: Yes (Disabling, Other)
  Sender: FDA-Public Use
  Company Number: FR-OTSUKA-16263923

PATIENT
  Age: 41 Year
  Sex: Female
  Weight: 54 kg

DRUGS (5)
  1. LEXAPRO [Concomitant]
     Active Substance: ESCITALOPRAM OXALATE
     Indication: PRODUCT USED FOR UNKNOWN INDICATION
     Dosage: STARTED MORE THAN A YEAR
     Route: 065
  2. ABILIFY [Suspect]
     Active Substance: ARIPIPRAZOLE
     Indication: MANIA
     Dosage: 10 MG, QD
     Route: 048
     Dates: start: 20111125, end: 20111128
  3. ZOPICLONE [Concomitant]
     Active Substance: ZOPICLONE
     Indication: PRODUCT USED FOR UNKNOWN INDICATION
     Dosage: STARTED MORE THAN A YEAR
     Route: 065
  4. HEPT-A-MYL [Concomitant]
     Active Substance: HEPTAMINOL HYDROCHLORIDE
     Indication: PRODUCT USED FOR UNKNOWN INDICATION
     Dosage: STARTED MORE THAN A YEAR
     Route: 065
  5. PARACETAMOL WITH CODEINE PHOSPHATE [Interacting]
     Active Substance: ACETAMINOPHEN\CODEINE PHOSPHATE
     Indication: PRODUCT USED FOR UNKNOWN INDICATION
     Dosage: ALSO AS CONMED PARACETAMOL:500MG, PHOSPHATE 30MG
     Route: 065

REACTIONS (5)
  - Muscle spasms [Recovered/Resolved]
  - Myalgia [Not Recovered/Not Resolved]
  - Drug interaction [Unknown]
  - Gait disturbance [Recovered/Resolved]
  - Pain in extremity [Recovered/Resolved]

NARRATIVE: CASE EVENT DATE: 20111126
